FAERS Safety Report 24569963 (Version 1)
Quarter: 2024Q4

REPORT INFORMATION
  Report Type: Report from Study
  Country: GB (occurrence: GB)
  Receive Date: 20241031
  Receipt Date: 20241031
  Transmission Date: 20250114
  Serious: Yes (Hospitalization, Other)
  Sender: TEVA
  Company Number: GB-TEVA-VS-3249208

PATIENT
  Age: 78 Year
  Sex: Male

DRUGS (1)
  1. OCTREOTIDE [Suspect]
     Active Substance: OCTREOTIDE
     Indication: Product used for unknown indication
     Dosage: POWDER
     Route: 065

REACTIONS (10)
  - Vision blurred [Unknown]
  - Tinnitus [Recovered/Resolved]
  - Nasopharyngitis [Recovering/Resolving]
  - Tension headache [Recovered/Resolved]
  - Headache [Unknown]
  - Feeling abnormal [Recovered/Resolved]
  - Product solubility abnormal [Unknown]
  - Adverse drug reaction [Unknown]
  - Ear discomfort [Unknown]
  - Magnetic resonance imaging abnormal [Unknown]
